FAERS Safety Report 21917993 (Version 1)
Quarter: 2023Q1

REPORT INFORMATION
  Report Type: Spontaneous
  Country: US (occurrence: None)
  Receive Date: 20230127
  Receipt Date: 20230127
  Transmission Date: 20230418
  Serious: No
  Sender: FDA-Public Use
  Company Number: US-Ultragenyx Pharmaceutical Inc.-US-UGNX-22-00785

PATIENT
  Sex: Female
  Weight: 93.35 kg

DRUGS (2)
  1. DOJOLVI [Suspect]
     Active Substance: TRIHEPTANOIN
     Indication: Amino acid metabolism disorder
     Route: 048
     Dates: start: 20210226
  2. DOJOLVI [Suspect]
     Active Substance: TRIHEPTANOIN
     Indication: Fatty acid oxidation disorder
     Route: 048
     Dates: start: 20210221

REACTIONS (3)
  - Decreased appetite [Unknown]
  - Malabsorption [Unknown]
  - Off label use [Unknown]
